FAERS Safety Report 4505407-X (Version None)
Quarter: 2004Q4

REPORT INFORMATION
  Report Type: 
  Country: None (occurrence: None)
  Receive Date: 20041116
  Receipt Date: 20041104
  Transmission Date: 20050328
  Serious: No
  Sender: FDA-Public Use
  Company Number: 2004AP05706

PATIENT
  Age: 70 Year
  Sex: Female

DRUGS (2)
  1. IRESSA [Suspect]
     Indication: LUNG NEOPLASM MALIGNANT
     Dosage: 250 MG DAILY PO
     Route: 048
     Dates: start: 20040121, end: 20040907
  2. RADIOTHERAPY [Concomitant]

REACTIONS (6)
  - ECZEMA ASTEATOTIC [None]
  - FOLLICULITIS [None]
  - INGROWING NAIL [None]
  - PETECHIAE [None]
  - PURPURA [None]
  - RASH [None]
